FAERS Safety Report 10108890 (Version 1)
Quarter: 2014Q2

REPORT INFORMATION
  Report Type: Spontaneous
  Country: US (occurrence: US)
  Receive Date: 20140425
  Receipt Date: 20140425
  Transmission Date: 20141212
  Serious: Yes (Other)
  Sender: FDA-Public Use
  Company Number: US-BEH-2014041903

PATIENT
  Sex: Female
  Weight: 51 kg

DRUGS (16)
  1. HIZENTRA [Suspect]
     Dosage: VIA 2-4 SITES OVER 1-2 HOURS
     Route: 058
  2. HIZENTRA [Suspect]
     Dosage: VIA 2-4 SITES OVER 1-2 HOURS
     Route: 058
  3. FUROSEMIDE [Concomitant]
  4. NITROFURANTOIN [Concomitant]
  5. SIMVASTATIN [Concomitant]
  6. MELOXICAM [Concomitant]
  7. GLIMEPIRIDE [Concomitant]
  8. LISINOPRIL [Concomitant]
  9. TRAZODONE [Concomitant]
  10. DILTIAZEM [Concomitant]
  11. ACTOS [Concomitant]
  12. ACETAMINOPHEN [Concomitant]
  13. DIPHENHYDRAMINE [Concomitant]
  14. LIDOCAINE [Concomitant]
  15. EPI-PEN [Concomitant]
  16. LMX [Concomitant]

REACTIONS (1)
  - Breast cancer [Unknown]
